FAERS Safety Report 25227705 (Version 2)
Quarter: 2025Q2

REPORT INFORMATION
  Report Type: Report from Study
  Country: US (occurrence: US)
  Receive Date: 20250423
  Receipt Date: 20250513
  Transmission Date: 20250717
  Serious: Yes (Hospitalization, Other)
  Sender: ABBVIE
  Company Number: US-ABBVIE-6234031

PATIENT
  Age: 71 Year
  Sex: Male

DRUGS (2)
  1. CREON [Suspect]
     Active Substance: PANCRELIPASE AMYLASE\PANCRELIPASE LIPASE\PANCRELIPASE PROTEASE
     Indication: Pancreatic failure
     Route: 048
     Dates: start: 20240615
  2. CREON [Suspect]
     Active Substance: PANCRELIPASE AMYLASE\PANCRELIPASE LIPASE\PANCRELIPASE PROTEASE
     Indication: Pancreatic failure
     Route: 048
     Dates: start: 20250212

REACTIONS (7)
  - Coronary artery occlusion [Unknown]
  - Heart rate irregular [Unknown]
  - Retching [Unknown]
  - Malaise [Unknown]
  - Splenic rupture [Unknown]
  - Dyspnoea [Unknown]
  - Spleen disorder [Unknown]

NARRATIVE: CASE EVENT DATE: 20250101
